FAERS Safety Report 23058221 (Version 1)
Quarter: 2023Q4

REPORT INFORMATION
  Report Type: Spontaneous
  Country: US (occurrence: US)
  Receive Date: 20231012
  Receipt Date: 20231012
  Transmission Date: 20240109
  Serious: No
  Sender: FDA-Public Use
  Company Number: US-AMGEN-USASP2023180416

PATIENT
  Age: 21 Year
  Sex: Male

DRUGS (2)
  1. TAVNEOS [Suspect]
     Active Substance: AVACOPAN
     Indication: Arteritis
     Dosage: 30 MILLIGRAM, BID ( : 30MG TWICE DAILY)
     Route: 065
     Dates: start: 20230425
  2. TAVNEOS [Suspect]
     Active Substance: AVACOPAN
     Indication: Off label use

REACTIONS (5)
  - Arteritis [Unknown]
  - Pain [Unknown]
  - Insomnia [Unknown]
  - Vomiting [Unknown]
  - Off label use [Unknown]

NARRATIVE: CASE EVENT DATE: 20230101
